FAERS Safety Report 5827367-1 (Version None)
Quarter: 2008Q3

REPORT INFORMATION
  Report Type: 
  Country: None (occurrence: None)
  Receive Date: 20080730
  Receipt Date: 20080718
  Transmission Date: 20090109
  Serious: Yes (Death, Hospitalization)
  Sender: FDA-Public Use
  Company Number: SE-AMGEN-US297199

PATIENT
  Age: 84 Year
  Sex: Female

DRUGS (8)
  1. ENBREL [Suspect]
     Indication: RHEUMATOID ARTHRITIS
     Dosage: UNKNOWN
     Route: 065
  2. METHOTREXATE [Suspect]
     Route: 065
  3. PREDNISOLON [Concomitant]
     Indication: RHEUMATOID ARTHRITIS
     Route: 065
  4. FURIX [Concomitant]
     Route: 065
  5. WARFARIN SODIUM [Concomitant]
     Route: 065
  6. IMDUR [Concomitant]
     Route: 065
  7. NITROMEX [Concomitant]
     Route: 065
  8. SELOKEN [Concomitant]
     Route: 065

REACTIONS (5)
  - INFECTION [None]
  - LUNG INFILTRATION [None]
  - MYOCARDIAL INFARCTION [None]
  - PYREXIA [None]
  - UNEVALUABLE EVENT [None]
